FAERS Safety Report 7969974-6 (Version None)
Quarter: 2011Q4

REPORT INFORMATION
  Report Type: 
  Country: None (occurrence: None)
  Receive Date: 20111212
  Receipt Date: 20111129
  Transmission Date: 20120403
  Serious: Yes (Hospitalization)
  Sender: FDA-Public Use
  Company Number: GB-US-EMD SERONO, INC.-7087188

PATIENT
  Sex: Female

DRUGS (11)
  1. TRIMETHOPRIM [Concomitant]
     Indication: PROPHYLAXIS URINARY TRACT INFECTION
     Route: 048
     Dates: start: 20090731
  2. BACLOFEN [Concomitant]
     Indication: MUSCLE SPASTICITY
     Route: 048
     Dates: start: 20100317
  3. CEPHALEXIN [Concomitant]
     Indication: PROPHYLAXIS URINARY TRACT INFECTION
     Route: 048
     Dates: start: 20110401
  4. PHENERGAN [Concomitant]
     Indication: DRUG HYPERSENSITIVITY
     Dosage: 10 TO 20 MG
     Route: 048
     Dates: start: 20100401
  5. NITROFURANTOIN [Concomitant]
     Indication: PROPHYLAXIS URINARY TRACT INFECTION
     Route: 048
     Dates: start: 20090731
  6. REBIF [Suspect]
     Indication: RELAPSING-REMITTING MULTIPLE SCLEROSIS
     Route: 058
     Dates: start: 20090413, end: 20110802
  7. VESICARE [Concomitant]
     Indication: POLLAKIURIA
     Route: 048
     Dates: start: 20110406
  8. GABAPENTIN [Concomitant]
     Indication: NEURALGIA
     Route: 048
     Dates: start: 20110406
  9. TRAMADOL HCL [Concomitant]
     Indication: PAIN
     Route: 048
     Dates: start: 20110727
  10. REBIF [Suspect]
     Route: 058
     Dates: start: 20110902
  11. CITALOPRAM [Concomitant]
     Indication: DEPRESSION
     Route: 048
     Dates: start: 20080221

REACTIONS (5)
  - VIRAL INFECTION [None]
  - URTICARIA [None]
  - RASH [None]
  - MULTIPLE SCLEROSIS RELAPSE [None]
  - WHEEZING [None]
